FAERS Safety Report 10004067 (Version 4)
Quarter: 2015Q1

REPORT INFORMATION
  Report Type: Spontaneous
  Country: US (occurrence: US)
  Receive Date: 20140312
  Receipt Date: 20150327
  Transmission Date: 20150720
  Serious: Yes (Hospitalization)
  Sender: FDA-Public Use
  Company Number: US-BAYER-2014-036172

PATIENT
  Age: 40 Year
  Sex: Female
  Weight: 56.69 kg

DRUGS (5)
  1. YAZ [Suspect]
     Active Substance: DROSPIRENONE\ETHINYL ESTRADIOL
     Indication: ACNE
     Dosage: UNK
     Dates: start: 200910, end: 201107
  2. BEYAZ [Suspect]
     Active Substance: DROSPIRENONE\ETHINYL ESTRADIOL\LEVOMEFOLATE CALCIUM
     Indication: ACNE
     Dosage: UNK
     Dates: start: 201108, end: 201110
  3. YASMIN [Suspect]
     Active Substance: DROSPIRENONE\ETHINYL ESTRADIOL
     Dosage: UNK
     Dates: start: 2010, end: 2011
  4. CALCIUM [CALCIUM] [Concomitant]
     Active Substance: CALCIUM
     Indication: VITAMIN SUPPLEMENTATION
     Dosage: UNK UNK, QD
  5. BIOTIN [Concomitant]
     Active Substance: BIOTIN

REACTIONS (10)
  - Anxiety [None]
  - General physical health deterioration [None]
  - Axillary vein thrombosis [Recovered/Resolved]
  - Pain [None]
  - Peripheral swelling [None]
  - Deep vein thrombosis [None]
  - Abdominal pain [None]
  - Emotional distress [None]
  - Injury [None]
  - Subclavian vein thrombosis [Recovered/Resolved]

NARRATIVE: CASE EVENT DATE: 201110
